FAERS Safety Report 9736108 (Version 1)
Quarter: 2013Q4

REPORT INFORMATION
  Report Type: Spontaneous
  Country: US (occurrence: US)
  Receive Date: 20131206
  Receipt Date: 20131206
  Transmission Date: 20140711
  Serious: Yes (Other)
  Sender: FDA-Public Use
  Company Number: CHPA2013US018021

PATIENT
  Age: 60 Year
  Sex: Male

DRUGS (2)
  1. MAALOX UNKNOWN [Suspect]
     Indication: GASTROOESOPHAGEAL REFLUX DISEASE
     Dosage: 2 TBSP, QD
     Dates: end: 2011
  2. MAALOX UNKNOWN [Suspect]
     Indication: OFF LABEL USE

REACTIONS (2)
  - Atrial fibrillation [Unknown]
  - Incorrect dose administered [Unknown]
